FAERS Safety Report 4858195-1 (Version None)
Quarter: 2005Q4

REPORT INFORMATION
  Report Type: 
  Country: None (occurrence: None)
  Receive Date: 20051219
  Receipt Date: 20050321
  Transmission Date: 20060501
  Serious: No
  Sender: FDA-Public Use
  Company Number: US-GLAXOSMITHKLINE-A0550534A

PATIENT
  Age: 58 Year
  Sex: Female

DRUGS (4)
  1. NICODERM CQ [Suspect]
     Dates: end: 20050317
  2. LIBRAX [Concomitant]
  3. PRAVACHOL [Concomitant]
     Indication: BLOOD CHOLESTEROL INCREASED
  4. PREDNISONE TAB [Concomitant]
     Indication: EMPHYSEMA

REACTIONS (9)
  - APPLICATION SITE BLEEDING [None]
  - APPLICATION SITE DERMATITIS [None]
  - APPLICATION SITE EXCORIATION [None]
  - APPLICATION SITE IRRITATION [None]
  - APPLICATION SITE PRURITUS [None]
  - APPLICATION SITE REACTION [None]
  - APPLICATION SITE SWELLING [None]
  - NIGHTMARE [None]
  - RASH GENERALISED [None]
